FAERS Safety Report 8289072-4 (Version None)
Quarter: 2012Q2

REPORT INFORMATION
  Report Type: 
  Country: None (occurrence: None)
  Receive Date: 20120417
  Receipt Date: 20120406
  Transmission Date: 20120825
  Serious: Yes (Death, Hospitalization)
  Sender: FDA-Public Use
  Company Number: US-JNJFOC-20120400575

PATIENT
  Sex: Female

DRUGS (2)
  1. UNSPECIFIED NARCOTIC [Suspect]
     Indication: PRODUCT USED FOR UNKNOWN INDICATION
  2. XARELTO [Suspect]
     Indication: PROPHYLAXIS
     Route: 048

REACTIONS (1)
  - DEATH [None]
